FAERS Safety Report 7675268-9 (Version None)
Quarter: 2011Q3

REPORT INFORMATION
  Report Type: 
  Country: None (occurrence: None)
  Receive Date: 20110808
  Receipt Date: 20110722
  Transmission Date: 20111222
  Serious: Yes (Death, Disabling)
  Sender: FDA-Public Use
  Company Number: IPC201107-002768

PATIENT
  Sex: Female

DRUGS (4)
  1. REGLAN [Suspect]
     Indication: DYSPEPSIA
     Dosage: REGLAN [10005265 - BLOATING] [V.14.0] ORAL
     Route: 048
  2. REGLAN [Suspect]
     Indication: ABDOMINAL DISTENSION
     Dosage: REGLAN [10005265 - BLOATING] [V.14.0] ORAL
     Route: 048
  3. METOCLOPRAMIDE HYDROCHLORIDE [Suspect]
     Indication: ABDOMINAL DISTENSION
     Dosage: ORAL
     Route: 048
  4. METOCLOPRAMIDE HYDROCHLORIDE [Suspect]
     Indication: DYSPEPSIA
     Dosage: ORAL
     Route: 048

REACTIONS (1)
  - TARDIVE DYSKINESIA [None]
